FAERS Safety Report 13798707 (Version 2)
Quarter: 2017Q4

REPORT INFORMATION
  Report Type: Spontaneous
  Country: US (occurrence: US)
  Receive Date: 20170727
  Receipt Date: 20171006
  Transmission Date: 20180320
  Serious: No
  Sender: FDA-Public Use
  Company Number: US-JNJFOC-20170711404

PATIENT
  Sex: Female

DRUGS (2)
  1. MENS ROGAINE [Suspect]
     Active Substance: MINOXIDIL
     Route: 061
  2. MENS ROGAINE [Suspect]
     Active Substance: MINOXIDIL
     Indication: DIFFUSE ALOPECIA
     Route: 061

REACTIONS (3)
  - Off label use [Unknown]
  - Product use in unapproved indication [Unknown]
  - Product use issue [Unknown]
